FAERS Safety Report 15396674 (Version 1)
Quarter: 2018Q3

REPORT INFORMATION
  Report Type: Spontaneous
  Country: US (occurrence: US)
  Receive Date: 20180918
  Receipt Date: 20180918
  Transmission Date: 20181010
  Serious: No
  Sender: FDA-Public Use
  Company Number: US-ENDO PHARMACEUTICALS INC-2018-014774

PATIENT
  Age: 47 Year
  Sex: Female

DRUGS (1)
  1. CHOLESTYRAMINE. [Suspect]
     Active Substance: CHOLESTYRAMINE
     Indication: PRODUCT USED FOR UNKNOWN INDICATION
     Dosage: 1 DF, SINGLE, 1 PACKET PER DAY
     Route: 048
     Dates: start: 201711

REACTIONS (2)
  - Product physical consistency issue [Recovered/Resolved]
  - Product taste abnormal [Recovered/Resolved]

NARRATIVE: CASE EVENT DATE: 201711
